FAERS Safety Report 4839545-9 (Version None)
Quarter: 2005Q4

REPORT INFORMATION
  Report Type: 
  Country: None (occurrence: None)
  Receive Date: 20051129
  Receipt Date: 20051123
  Transmission Date: 20060501
  Serious: Yes (Hospitalization)
  Sender: FDA-Public Use
  Company Number: FR-AVENTIS-200513859FR

PATIENT
  Age: 78 Year
  Sex: Female

DRUGS (5)
  1. LASILIX RETARD [Suspect]
     Indication: ESSENTIAL HYPERTENSION
     Route: 048
  2. DIAMICRON [Suspect]
     Indication: DIABETES MELLITUS NON-INSULIN-DEPENDENT
     Route: 048
  3. COVERSYL [Suspect]
     Indication: ESSENTIAL HYPERTENSION
     Route: 048
  4. BAYPRESS [Concomitant]
     Indication: ESSENTIAL HYPERTENSION
     Route: 048
  5. LIPANTHYL [Concomitant]
     Indication: HYPERCHOLESTEROLAEMIA
     Route: 048

REACTIONS (1)
  - HYPOGLYCAEMIA [None]
